FAERS Safety Report 6208135-8 (Version None)
Quarter: 2009Q2

REPORT INFORMATION
  Report Type: 
  Country: None (occurrence: None)
  Receive Date: 20090529
  Receipt Date: 20090516
  Transmission Date: 20091009
  Serious: Yes (Other)
  Sender: FDA-Public Use
  Company Number: US-ROCHE-593911

PATIENT
  Age: 36 Year
  Sex: Female

DRUGS (3)
  1. TAMIFLU [Suspect]
     Indication: INFLUENZA
     Dosage: SINGLE DOSE.
     Route: 065
     Dates: start: 20081027, end: 20081027
  2. NEXIUM [Concomitant]
  3. CARAFATE [Concomitant]

REACTIONS (5)
  - ABDOMINAL PAIN UPPER [None]
  - GASTROOESOPHAGEAL REFLUX DISEASE [None]
  - NIGHT SWEATS [None]
  - THYROIDITIS [None]
  - URTICARIA [None]
